FAERS Safety Report 16870018 (Version 3)
Quarter: 2022Q1

REPORT INFORMATION
  Report Type: Report from Study
  Country: US (occurrence: US)
  Receive Date: 20190930
  Receipt Date: 20220310
  Transmission Date: 20220423
  Serious: Yes (Life-Threatening, Hospitalization, Other)
  Sender: FDA-Public Use
  Company Number: US-BAYER-2019-176927

PATIENT
  Age: 61 Year
  Sex: Male
  Weight: 92.8 kg

DRUGS (16)
  1. COPANLISIB [Suspect]
     Active Substance: COPANLISIB
     Indication: Glioblastoma multiforme
     Dosage: CYCLE 28 DAYS: 60 MG OVER 60 MINUTES ON DAYS 1, 8 AND 15
     Route: 042
     Dates: start: 20190522
  2. COPANLISIB [Suspect]
     Active Substance: COPANLISIB
     Indication: Glioblastoma multiforme
     Dosage: CYCLE 28 DAYS: 60 MG OVER 60 MINUTES ON DAYS 1, 8 AND 15
     Route: 042
     Dates: start: 20190619
  3. XARELTO [Concomitant]
     Active Substance: RIVAROXABAN
  4. XARELTO [Concomitant]
     Active Substance: RIVAROXABAN
  5. AMLODIPINE [Concomitant]
     Active Substance: AMLODIPINE BESYLATE
  6. ARMODAFINIL [Concomitant]
     Active Substance: ARMODAFINIL
  7. CITALOPRAM [Concomitant]
     Active Substance: CITALOPRAM HYDROBROMIDE
  8. CLONAZEPAM [Concomitant]
     Active Substance: CLONAZEPAM
  9. CLONIDINE [Concomitant]
     Active Substance: CLONIDINE
  10. FAMOTIDINE [Concomitant]
     Active Substance: FAMOTIDINE
  11. GABAPENTIN [Concomitant]
     Active Substance: GABAPENTIN
  12. HYDROCODONE [Concomitant]
     Active Substance: HYDROCODONE
  13. LEVETIRACETAM [Concomitant]
     Active Substance: LEVETIRACETAM
  14. MARINOL [Concomitant]
     Active Substance: DRONABINOL
  15. NYSTATIN [Concomitant]
     Active Substance: NYSTATIN
  16. PROCHLORPERAZINE [Concomitant]
     Active Substance: PROCHLORPERAZINE

REACTIONS (4)
  - Hypertension [Recovered/Resolved]
  - Headache [None]
  - Brain oedema [None]
  - Lymphopenia [Recovered/Resolved]

NARRATIVE: CASE EVENT DATE: 20190522
